FAERS Safety Report 7361116-3 (Version None)
Quarter: 2011Q1

REPORT INFORMATION
  Report Type: 
  Country: None (occurrence: None)
  Receive Date: 20110318
  Receipt Date: 20110314
  Transmission Date: 20110831
  Serious: Yes (Death)
  Sender: FDA-Public Use
  Company Number: ES-ROCHE-765327

PATIENT
  Age: 64 Year
  Sex: Female

DRUGS (6)
  1. DOCETAXEL [Suspect]
     Indication: BREAST CANCER
     Route: 042
     Dates: start: 20110201, end: 20110201
  2. CARBOPLATIN [Suspect]
     Indication: BREAST CANCER
     Dosage: DRUG REPORTED: CARBOPLATINO TEVA
     Route: 042
     Dates: start: 20110201, end: 20110201
  3. COROPRES [Concomitant]
     Indication: HYPERTENSION
     Route: 048
     Dates: start: 20110120, end: 20110209
  4. PRAVASTATIN [Concomitant]
     Route: 048
     Dates: start: 20110120, end: 20110209
  5. HERCEPTIN [Suspect]
     Indication: BREAST CANCER
     Dosage: FREQ: TOTAL
     Route: 042
     Dates: start: 20110201, end: 20110201
  6. KALPRESS [Concomitant]
     Indication: HYPERTENSION
     Route: 048
     Dates: start: 20110120, end: 20110209

REACTIONS (2)
  - SEPTIC SHOCK [None]
  - AGRANULOCYTOSIS [None]
